FAERS Safety Report 6832526-5 (Version None)
Quarter: 2010Q3

REPORT INFORMATION
  Report Type: 
  Country: None (occurrence: None)
  Receive Date: 20100712
  Receipt Date: 20070313
  Transmission Date: 20110219
  Serious: No
  Sender: FDA-Public Use
  Company Number: US-PFIZER INC-2007020862

PATIENT
  Sex: Female
  Weight: 84.37 kg

DRUGS (7)
  1. CHANTIX [Suspect]
     Indication: SMOKING CESSATION THERAPY
     Dosage: 1 EVERY NA DAYS
     Dates: start: 20070301
  2. FORADIL [Concomitant]
  3. SPIRIVA [Concomitant]
  4. MONTELUKAST SODIUM [Concomitant]
  5. ACIPHEX [Concomitant]
  6. MULTI-VITAMINS [Concomitant]
  7. EFFEXOR [Concomitant]
     Indication: DEPRESSION

REACTIONS (5)
  - ABNORMAL DREAMS [None]
  - DEPRESSION [None]
  - HEADACHE [None]
  - NAUSEA [None]
  - SINUSITIS [None]
